FAERS Safety Report 19641146 (Version 1)
Quarter: 2021Q3

REPORT INFORMATION
  Report Type: Spontaneous
  Country: QA (occurrence: QA)
  Receive Date: 20210730
  Receipt Date: 20210730
  Transmission Date: 20211014
  Serious: Yes (Death, Hospitalization, Other)
  Sender: FDA-Public Use
  Company Number: QA-SUN PHARMACEUTICAL INDUSTRIES LTD-2021R1-306083

PATIENT
  Age: 39 Year
  Sex: Male

DRUGS (4)
  1. DEXAMETHASONE. [Suspect]
     Active Substance: DEXAMETHASONE
     Dosage: 40 MILLIGRAM, DAILY/ DAY 9 TO DAY 12, BOLUS
     Route: 042
  2. DEXAMETHASONE. [Suspect]
     Active Substance: DEXAMETHASONE
     Dosage: 40 MILLIGRAM, DAILY/ DAY 17 TO DAY 21, BOLUS
     Route: 042
  3. DEXAMETHASONE. [Suspect]
     Active Substance: DEXAMETHASONE
     Dosage: 8 MILLIGRAM/ BETWEEN BOLUS
     Route: 065
  4. DEXAMETHASONE. [Suspect]
     Active Substance: DEXAMETHASONE
     Indication: CHEMOTHERAPY
     Dosage: 40 MILLIGRAM, DAILY/ DAY 1 TO DAY 4, BOLUS
     Route: 042

REACTIONS (6)
  - Meningitis aseptic [Unknown]
  - Septic shock [Fatal]
  - Disseminated strongyloidiasis [Unknown]
  - Pneumonia fungal [Unknown]
  - Urinary tract infection [Unknown]
  - Pneumonia bacterial [Unknown]
